FAERS Safety Report 18246188 (Version 1)
Quarter: 2020Q3

REPORT INFORMATION
  Report Type: Spontaneous
  Country: FR (occurrence: FR)
  Receive Date: 20200909
  Receipt Date: 20200909
  Transmission Date: 20201103
  Serious: Yes (Life-Threatening)
  Sender: FDA-Public Use
  Company Number: FR-TEVA-2020-FR-1824290

PATIENT
  Age: 56 Year
  Sex: Female

DRUGS (2)
  1. KETOPROFENE [Suspect]
     Active Substance: KETOPROFEN
     Indication: PRODUCT USED FOR UNKNOWN INDICATION
     Dosage: 1 DOSAGE FORMS
     Route: 048
     Dates: start: 201902, end: 201902
  2. PARACETAMOL [Concomitant]
     Active Substance: ACETAMINOPHEN

REACTIONS (1)
  - Anaphylactic reaction [Recovered/Resolved]

NARRATIVE: CASE EVENT DATE: 201902
